FAERS Safety Report 8495936-9 (Version None)
Quarter: 2012Q3

REPORT INFORMATION
  Report Type: 
  Country: None (occurrence: None)
  Receive Date: 20120709
  Receipt Date: 20120405
  Transmission Date: 20120928
  Serious: Yes (Death)
  Sender: FDA-Public Use
  Company Number: US-GLAXOSMITHKLINE-A0973446A

PATIENT
  Age: 57 Year
  Sex: Male
  Weight: 93 kg

DRUGS (2)
  1. COUMADIN [Concomitant]
  2. FLOLAN [Suspect]
     Indication: PULMONARY HYPERTENSION
     Dosage: 14NGKM SEE DOSAGE TEXT
     Route: 042
     Dates: start: 20120105

REACTIONS (3)
  - CHEST PAIN [None]
  - DEATH [None]
  - DYSPNOEA [None]
